FAERS Safety Report 11251144 (Version 1)
Quarter: 2015Q3

REPORT INFORMATION
  Report Type: Spontaneous
  Country: US (occurrence: US)
  Receive Date: 20150708
  Receipt Date: 20150708
  Transmission Date: 20151125
  Serious: No
  Sender: FDA-Public Use
  Company Number: US-ELI_LILLY_AND_COMPANY-US201109001932

PATIENT
  Age: 74 Year
  Sex: Male

DRUGS (2)
  1. OTHER DRUGS FOR TREATMENT OF TUBERCULOSIS [Concomitant]
     Active Substance: UNSPECIFIED INGREDIENT
     Indication: TUBERCULOSIS
  2. ALIMTA [Suspect]
     Active Substance: PEMETREXED DISODIUM
     Dosage: UNK

REACTIONS (2)
  - Gastrointestinal disorder [Recovered/Resolved]
  - Diarrhoea [Recovered/Resolved]

NARRATIVE: CASE EVENT DATE: 20110421
